FAERS Safety Report 19105548 (Version 2)
Quarter: 2021Q2

REPORT INFORMATION
  Report Type: Report from Study
  Country: US (occurrence: US)
  Receive Date: 20210407
  Receipt Date: 20210412
  Transmission Date: 20210717
  Serious: Yes (Hospitalization)
  Sender: FDA-Public Use
  Company Number: US-BAUSCH-BL-2021-011873

PATIENT
  Age: 74 Year
  Sex: Male

DRUGS (17)
  1. ALLERTEC [Concomitant]
     Active Substance: CETIRIZINE HYDROCHLORIDE
     Indication: PRODUCT USED FOR UNKNOWN INDICATION
     Route: 048
     Dates: start: 20190103
  2. VITAMIN B12 [Concomitant]
     Active Substance: CYANOCOBALAMIN
     Indication: PRODUCT USED FOR UNKNOWN INDICATION
     Route: 048
     Dates: start: 20201125
  3. LEVOTHYROXINE SODIUM. [Concomitant]
     Active Substance: LEVOTHYROXINE SODIUM
     Indication: PRODUCT USED FOR UNKNOWN INDICATION
     Dosage: 1TAB EVERY DAY EXCEPT MONDAY, WEDNESDAY, FRIDAY TAKE HALF
     Route: 048
     Dates: start: 20201130, end: 20210224
  4. LASIX [Concomitant]
     Active Substance: FUROSEMIDE
     Indication: LOCALISED OEDEMA
     Route: 048
     Dates: start: 20210209, end: 20210224
  5. LACTULOSE. [Concomitant]
     Active Substance: LACTULOSE
     Dosage: 10 GM/15 ML, HOLD FOR DIARRHEA MORE THAN TIMES A DAY
     Route: 048
     Dates: start: 20210129
  6. ALLOPURINOL. [Concomitant]
     Active Substance: ALLOPURINOL
     Indication: PRODUCT USED FOR UNKNOWN INDICATION
     Dosage: TAKE HALF TABLET DAILY
     Route: 048
     Dates: start: 20210129
  7. GLIPIZIDE. [Concomitant]
     Active Substance: GLIPIZIDE
     Indication: PRODUCT USED FOR UNKNOWN INDICATION
     Route: 048
     Dates: start: 20210209, end: 20210224
  8. IRON [Concomitant]
     Active Substance: IRON
     Indication: PRODUCT USED FOR UNKNOWN INDICATION
     Dosage: 325 MG (65 MG IRON)
     Route: 048
     Dates: start: 20201125, end: 20210224
  9. METFORMIN [Suspect]
     Active Substance: METFORMIN HYDROCHLORIDE
     Indication: PRODUCT USED FOR UNKNOWN INDICATION
     Route: 065
  10. LACTULOSE. [Concomitant]
     Active Substance: LACTULOSE
     Indication: PRODUCT USED FOR UNKNOWN INDICATION
     Dosage: 20 GM/30ML, HOLD FOR DIARRHEA MORE THAN TIMES A DAY
     Route: 048
     Dates: start: 20201125
  11. SYNTHROID [Concomitant]
     Active Substance: LEVOTHYROXINE SODIUM
     Indication: PRODUCT USED FOR UNKNOWN INDICATION
     Dosage: M, W, F
     Route: 048
     Dates: start: 20201125
  12. MAGNESIUM [Concomitant]
     Active Substance: MAGNESIUM
     Indication: PRODUCT USED FOR UNKNOWN INDICATION
     Dosage: 2 DOSAGE FORMS 2 TIMES DAILY
     Route: 048
     Dates: start: 20201125, end: 20210224
  13. SPIRONOLACTONE. [Concomitant]
     Active Substance: SPIRONOLACTONE
     Indication: PRODUCT USED FOR UNKNOWN INDICATION
     Route: 048
     Dates: start: 20201130, end: 20210224
  14. FARXIGA [Concomitant]
     Active Substance: DAPAGLIFLOZIN PROPANEDIOL
     Indication: PRODUCT USED FOR UNKNOWN INDICATION
     Dosage: IN MORNING
     Route: 048
     Dates: start: 20210114
  15. XIFAXAN [Suspect]
     Active Substance: RIFAXIMIN
     Indication: HEPATIC ENCEPHALOPATHY
     Route: 048
     Dates: start: 20210128
  16. ALBUTEROL SULFATE HFA [Concomitant]
     Active Substance: ALBUTEROL SULFATE
     Indication: PRODUCT USED FOR UNKNOWN INDICATION
     Dosage: 90 MCG/ACUTATION
  17. SYMBICORT [Concomitant]
     Active Substance: BUDESONIDE\FORMOTEROL FUMARATE DIHYDRATE
     Indication: PRODUCT USED FOR UNKNOWN INDICATION
     Dosage: 106/4.5 MCG/ACUTATION, 2 PUFFS 2 TIMES DAILY
     Dates: start: 20201109

REACTIONS (3)
  - Acidosis [Unknown]
  - Inability to afford medication [Unknown]
  - Encephalopathy [Unknown]

NARRATIVE: CASE EVENT DATE: 2021
